FAERS Safety Report 5611166-X (Version None)
Quarter: 2008Q1

REPORT INFORMATION
  Report Type: 
  Country: None (occurrence: None)
  Receive Date: 20080201
  Receipt Date: 20080122
  Transmission Date: 20080703
  Serious: Yes (Other)
  Sender: FDA-Public Use
  Company Number: JP-SANOFI-SYNTHELABO-A01200800745

PATIENT
  Age: 79 Year

DRUGS (1)
  1. MYSLEE [Suspect]
     Dosage: 10 MG
     Route: 048

REACTIONS (1)
  - DELIRIUM [None]
